FAERS Safety Report 13817410 (Version 3)
Quarter: 2018Q3

REPORT INFORMATION
  Report Type: Spontaneous
  Country: NL (occurrence: NL)
  Receive Date: 20170731
  Receipt Date: 20180801
  Transmission Date: 20181010
  Serious: Yes (Death, Life-Threatening, Hospitalization, Other)
  Sender: FDA-Public Use
  Company Number: PHHY2017NL110042

PATIENT
  Age: 55 Year
  Sex: Female

DRUGS (6)
  1. LORAZEPAM. [Suspect]
     Active Substance: LORAZEPAM
     Indication: PRODUCT USED FOR UNKNOWN INDICATION
     Dosage: 180 MG, UNK
     Route: 065
  2. SERTRALINE [Suspect]
     Active Substance: SERTRALINE HYDROCHLORIDE
     Indication: PRODUCT USED FOR UNKNOWN INDICATION
     Dosage: 4600 MG,
     Route: 065
  3. OLANZAPINE. [Suspect]
     Active Substance: OLANZAPINE
     Dosage: 65 MG, TOTAL
     Route: 048
  4. OLANZAPINE. [Suspect]
     Active Substance: OLANZAPINE
     Indication: PRODUCT USED FOR UNKNOWN INDICATION
     Dosage: 65 MG,
     Route: 048
  5. PARACETAMOL [Suspect]
     Active Substance: ACETAMINOPHEN
     Indication: PRODUCT USED FOR UNKNOWN INDICATION
     Dosage: 10 G,
     Route: 065
  6. NIFEDIPINE. [Suspect]
     Active Substance: NIFEDIPINE
     Indication: PRODUCT USED FOR UNKNOWN INDICATION
     Dosage: 200 MG,
     Route: 065

REACTIONS (20)
  - Acute respiratory distress syndrome [Fatal]
  - Serotonin syndrome [Fatal]
  - Respiratory failure [Fatal]
  - Hypotension [Unknown]
  - Hepatic failure [Fatal]
  - Hypertonia [Fatal]
  - Ventricular hypokinesia [Fatal]
  - Toxicity to various agents [Fatal]
  - Overdose [Fatal]
  - Multiple organ dysfunction syndrome [Fatal]
  - Sinus tachycardia [Fatal]
  - Acute kidney injury [Fatal]
  - Autonomic nervous system imbalance [Fatal]
  - Renal failure [Fatal]
  - Tachypnoea [Fatal]
  - Hyperreflexia [Fatal]
  - Symptom masked [Unknown]
  - Shock [Fatal]
  - Rhabdomyolysis [Fatal]
  - Disorientation [Fatal]
